FAERS Safety Report 21959672 (Version 3)
Quarter: 2023Q1

REPORT INFORMATION
  Report Type: Spontaneous
  Country: US (occurrence: US)
  Receive Date: 20230206
  Receipt Date: 20230306
  Transmission Date: 20230417
  Serious: Yes (Life-Threatening, Hospitalization)
  Sender: FDA-Public Use
  Company Number: US-NOVOPROD-1017185

PATIENT
  Sex: Female
  Weight: 117.01 kg

DRUGS (14)
  1. JARDIANCE [Concomitant]
     Active Substance: EMPAGLIFLOZIN
     Indication: Type 2 diabetes mellitus
     Dosage: 25 MG, QD
     Route: 048
     Dates: start: 20210703, end: 20211012
  2. INSULIN GLARGINE [Concomitant]
     Active Substance: INSULIN GLARGINE
     Indication: Type 2 diabetes mellitus
     Dosage: 15 IU, QD
     Route: 058
     Dates: start: 20211018, end: 20211112
  3. LEVEMIR [Suspect]
     Active Substance: INSULIN DETEMIR
     Dosage: 44 IU, QD
     Route: 058
     Dates: start: 20211207, end: 20220107
  4. LEVEMIR [Suspect]
     Active Substance: INSULIN DETEMIR
     Dosage: 40 IU, QD
     Route: 058
     Dates: start: 20211129, end: 20211207
  5. LEVEMIR [Suspect]
     Active Substance: INSULIN DETEMIR
     Indication: Type 2 diabetes mellitus
     Dosage: 30 IU, QD
     Route: 058
     Dates: start: 20211112, end: 20211118
  6. LEVEMIR [Suspect]
     Active Substance: INSULIN DETEMIR
     Dosage: 34 IU, QD
     Route: 058
     Dates: start: 20211118, end: 20211129
  7. LEVEMIR [Suspect]
     Active Substance: INSULIN DETEMIR
     Dosage: 56 IU, QD
     Dates: start: 20220107
  8. NOVOLOG [Suspect]
     Active Substance: INSULIN ASPART
     Indication: Type 2 diabetes mellitus
     Dosage: 3 IU, TID
     Route: 058
     Dates: start: 20211112, end: 20211116
  9. INSULIN LISPRO [Concomitant]
     Active Substance: INSULIN LISPRO
     Dosage: 5-7  IU, TID
     Route: 058
     Dates: start: 20211207
  10. INSULIN LISPRO [Concomitant]
     Active Substance: INSULIN LISPRO
     Indication: Type 2 diabetes mellitus
     Dosage: 3 IU, TID
     Route: 058
     Dates: start: 20211116, end: 20211129
  11. INSULIN LISPRO [Concomitant]
     Active Substance: INSULIN LISPRO
     Dosage: 5 IU, TID
     Route: 058
     Dates: start: 20211129, end: 20211207
  12. METFORMIN [Concomitant]
     Active Substance: METFORMIN HYDROCHLORIDE
     Indication: Type 2 diabetes mellitus
     Dosage: 500 MG, BID
     Route: 048
     Dates: start: 20211130, end: 20211220
  13. GLIMEPIRIDE [Concomitant]
     Active Substance: GLIMEPIRIDE
  14. LEVOTHYROXINE [Concomitant]
     Active Substance: LEVOTHYROXINE

REACTIONS (2)
  - Pre-eclampsia [Recovered/Resolved]
  - Maternal exposure during pregnancy [Recovered/Resolved]

NARRATIVE: CASE EVENT DATE: 20211112
